FAERS Safety Report 18019314 (Version 1)
Quarter: 2020Q3

REPORT INFORMATION
  Report Type: Spontaneous
  Country: US (occurrence: US)
  Receive Date: 20200713
  Receipt Date: 20200713
  Transmission Date: 20201103
  Serious: Yes (Other)
  Sender: FDA-Public Use
  Company Number: None

PATIENT
  Age: 67 Year
  Sex: Female
  Weight: 79.2 kg

DRUGS (11)
  1. TERAZOSIN [Concomitant]
     Active Substance: TERAZOSIN HYDROCHLORIDE
  2. LISINOPRIL. [Concomitant]
     Active Substance: LISINOPRIL
  3. CLOPDOGREL [Concomitant]
  4. SERTRALINE [Concomitant]
     Active Substance: SERTRALINE HYDROCHLORIDE
  5. HYDROCODONE/ACETAMINOPHEN 5/325 [Suspect]
     Active Substance: ACETAMINOPHEN\HYDROCODONE
     Indication: ARTHRALGIA
     Dosage: ?          OTHER STRENGTH:5/325;QUANTITY:1 TABLET(S);?
     Route: 048
     Dates: start: 20200506, end: 20200712
  6. ATORVASTATIN [Concomitant]
     Active Substance: ATORVASTATIN
  7. TIZANIDINE PRN [Concomitant]
  8. SUDAFED PE CONGESTION [Concomitant]
     Active Substance: PHENYLEPHRINE HYDROCHLORIDE
  9. ALBUTEROL SULFATE. [Concomitant]
     Active Substance: ALBUTEROL SULFATE
  10. MUCINEX DM [Concomitant]
     Active Substance: DEXTROMETHORPHAN HYDROBROMIDE\GUAIFENESIN
  11. HYDROCODONE/ACETAMINOPHEN 5/325 [Suspect]
     Active Substance: ACETAMINOPHEN\HYDROCODONE
     Indication: BACK PAIN
     Dosage: ?          OTHER STRENGTH:5/325;QUANTITY:1 TABLET(S);?
     Route: 048
     Dates: start: 20200506, end: 20200712

REACTIONS (3)
  - Laboratory test interference [None]
  - Urine analysis abnormal [None]
  - Drug screen positive [None]

NARRATIVE: CASE EVENT DATE: 20200701
